FAERS Safety Report 6232679-6 (Version None)
Quarter: 2009Q2

REPORT INFORMATION
  Report Type: 
  Country: None (occurrence: None)
  Receive Date: 20090612
  Receipt Date: 20090612
  Transmission Date: 20091009
  Serious: No
  Sender: FDA-Public Use
  Company Number: None

PATIENT
  Age: 55 Year
  Sex: Female
  Weight: 85.7298 kg

DRUGS (1)
  1. CIPRO [Suspect]
     Indication: SKIN INFECTION
     Dosage: 500 MG 2 TIMES A DAY PO
     Route: 048
     Dates: start: 20090203, end: 20090223

REACTIONS (3)
  - ARTHRALGIA [None]
  - ARTHRITIS [None]
  - JOINT SWELLING [None]
